FAERS Safety Report 12160038 (Version 1)
Quarter: 2016Q1

REPORT INFORMATION
  Report Type: Spontaneous
  Country: NZ (occurrence: NZ)
  Receive Date: 20160308
  Receipt Date: 20160308
  Transmission Date: 20160526
  Serious: Yes (Other)
  Sender: FDA-Public Use
  Company Number: NZ-ASTRAZENECA-2016SE21793

PATIENT
  Age: 50 Year
  Sex: Male

DRUGS (2)
  1. BRILINTA [Suspect]
     Active Substance: TICAGRELOR
     Indication: MYOCARDIAL INFARCTION
     Route: 048
     Dates: start: 20130811, end: 20150422
  2. STATIN [Concomitant]
     Active Substance: UNSPECIFIED INGREDIENT

REACTIONS (5)
  - Suicidal ideation [Recovered/Resolved]
  - Anger [Recovered/Resolved]
  - Irritability [Recovered/Resolved]
  - Aggression [Recovered/Resolved]
  - Depressed mood [Recovered/Resolved]
